FAERS Safety Report 6823466-6 (Version None)
Quarter: 2010Q3

REPORT INFORMATION
  Report Type: 
  Country: None (occurrence: None)
  Receive Date: 20100708
  Receipt Date: 20100702
  Transmission Date: 20110219
  Serious: Yes (Death)
  Sender: FDA-Public Use
  Company Number: PHHY2010US41621

PATIENT
  Sex: Male
  Weight: 44.41 kg

DRUGS (1)
  1. ZOMETA [Suspect]
     Dosage: UNK

REACTIONS (2)
  - MALIGNANT NEOPLASM PROGRESSION [None]
  - ORGAN FAILURE [None]
